FAERS Safety Report 5169075-9 (Version None)
Quarter: 2006Q4

REPORT INFORMATION
  Report Type: 
  Country: None (occurrence: None)
  Receive Date: 20061211
  Receipt Date: 20061201
  Transmission Date: 20070319
  Serious: Yes (Hospitalization)
  Sender: FDA-Public Use
  Company Number: US-JNJFOC-20061201192

PATIENT
  Sex: Female
  Weight: 56.7 kg

DRUGS (11)
  1. INFLIXIMAB [Suspect]
     Indication: RHEUMATOID ARTHRITIS
     Route: 042
  2. METHOTREXATE [Concomitant]
  3. LOPRESSOR [Concomitant]
  4. POTASSIUM ACETATE [Concomitant]
  5. PREDNISONE TAB [Concomitant]
  6. LASIX [Concomitant]
  7. FOLIC ACID [Concomitant]
  8. COUMADIN [Concomitant]
  9. CALTRATE [Concomitant]
  10. PRILOSEC [Concomitant]
  11. CARDIZEM [Concomitant]

REACTIONS (4)
  - BRONCHITIS [None]
  - COMPRESSION FRACTURE [None]
  - LUNG NEOPLASM [None]
  - SPINAL COMPRESSION FRACTURE [None]
